FAERS Safety Report 16500301 (Version 2)
Quarter: 2020Q3

REPORT INFORMATION
  Report Type: Spontaneous
  Country: DE (occurrence: DE)
  Receive Date: 20190701
  Receipt Date: 20200706
  Transmission Date: 20201102
  Serious: Yes (Other)
  Sender: FDA-Public Use
  Company Number: DE-ACCORD-136027

PATIENT
  Age: 42 Year
  Sex: Female
  Weight: 80 kg

DRUGS (5)
  1. QUETIAPINE. [Suspect]
     Active Substance: QUETIAPINE
     Indication: ORGANIC BRAIN SYNDROME
     Dosage: 50 MG/D
     Route: 048
     Dates: start: 20180319, end: 20181212
  2. LEVEMIR [Concomitant]
     Active Substance: INSULIN DETEMIR
     Indication: GESTATIONAL DIABETES
     Dosage: STRENGTH: 100 E/ML
     Route: 058
     Dates: start: 20181002, end: 20181212
  3. GINGIUM [Concomitant]
     Active Substance: GINKGO
     Indication: ORGANIC BRAIN SYNDROME
     Dosage: INTENS 120
     Route: 048
     Dates: start: 20180319, end: 20180427
  4. PIRACETAM [Concomitant]
     Active Substance: PIRACETAM
     Indication: ORGANIC BRAIN SYNDROME
     Dosage: 1200 MG/D
     Route: 048
     Dates: start: 20180319, end: 20180427
  5. LEVETIRACETAM. [Concomitant]
     Active Substance: LEVETIRACETAM
     Indication: EPILEPSY
     Dosage: 1500 MG/D
     Route: 048
     Dates: start: 20180319, end: 20181212

REACTIONS (2)
  - Exposure during pregnancy [Unknown]
  - Gestational diabetes [Recovered/Resolved]
